FAERS Safety Report 18334174 (Version 1)
Quarter: 2020Q4

REPORT INFORMATION
  Report Type: Other
  Country: CA (occurrence: CA)
  Receive Date: 20201001
  Receipt Date: 20201001
  Transmission Date: 20210113
  Serious: Yes (Other)
  Sender: FDA-Public Use
  Company Number: CA-CELLTRION INC.-2020CA027329

PATIENT

DRUGS (11)
  1. ESCITALOPRAM [Concomitant]
     Active Substance: ESCITALOPRAM OXALATE
  2. AZATHIOPRINE. [Concomitant]
     Active Substance: AZATHIOPRINE
  3. METHOTREXATE. [Concomitant]
     Active Substance: METHOTREXATE
  4. HYDROXYCHLOROQUINE SULFATE. [Concomitant]
     Active Substance: HYDROXYCHLOROQUINE SULFATE
  5. RITUXIMAB (UNKNOWN) [Suspect]
     Active Substance: RITUXIMAB
     Indication: RHEUMATOID ARTHRITIS
     Route: 042
  6. LORAZEPAM. [Concomitant]
     Active Substance: LORAZEPAM
  7. PREDNISONE. [Concomitant]
     Active Substance: PREDNISONE
  8. NIFEDIPINE. [Concomitant]
     Active Substance: NIFEDIPINE
  9. HYDROXYCHLOROQUINE [Concomitant]
     Active Substance: HYDROXYCHLOROQUINE
  10. FOLIC ACID. [Concomitant]
     Active Substance: FOLIC ACID
  11. QUETIAPINE. [Concomitant]
     Active Substance: QUETIAPINE

REACTIONS (1)
  - Raynaud^s phenomenon [Unknown]
